FAERS Safety Report 4791575-1 (Version None)
Quarter: 2005Q4

REPORT INFORMATION
  Report Type: 
  Country: None (occurrence: None)
  Receive Date: 20051007
  Receipt Date: 20050401
  Transmission Date: 20060501
  Serious: No
  Sender: FDA-Public Use
  Company Number: US-BRISTOL-MYERS SQUIBB COMPANY-12918033

PATIENT
  Age: 72 Year
  Sex: Female
  Weight: 90 kg

DRUGS (9)
  1. AVAPRO [Suspect]
     Indication: HYPERTENSION
     Dosage: 1 TABLET DAILY IN THE MORNING
     Route: 048
     Dates: start: 20050330
  2. ALTACE [Concomitant]
  3. MULTIVITAMIN [Concomitant]
  4. CITRACAL [Concomitant]
  5. HUMALOG [Concomitant]
     Dosage: USUALLY TAKEN BEFORE MEALS ON SLIDING SCALE; NOT TAKEN 3/30 + 4/1/05 DUE TO LOW BLOOD SUGARS.
     Route: 058
  6. LANTUS [Concomitant]
     Dosage: TAKEN ROUTINELY EACH MORNING. MD INSTRUCTED TO INCREASE INSULIN, BUT DID NOT DUE TO LOW BLOOD SUGAR
     Route: 058
  7. PRAVACHOL [Concomitant]
     Dosage: 20 MG, 1 TABLET, ONCE DAILY FOR AT LEAST 1 YEAR
     Route: 048
  8. TRIAMTERENE AND HYDROCHLOROTHIAZIDE [Concomitant]
  9. ASCORBIC ACID [Concomitant]

REACTIONS (1)
  - BLOOD GLUCOSE DECREASED [None]
